FAERS Safety Report 9371157 (Version 1)
Quarter: 2013Q2

REPORT INFORMATION
  Report Type: Spontaneous
  Country: US (occurrence: None)
  Receive Date: 20130626
  Receipt Date: 20130626
  Transmission Date: 20140414
  Serious: Yes (Other)
  Sender: FDA-Public Use
  Company Number: None

PATIENT
  Sex: Female
  Weight: 73.48 kg

DRUGS (1)
  1. CYMBALTA 60 MG ELI LILL [Suspect]
     Indication: PAIN
     Dosage: 1XDAY
     Route: 048
     Dates: start: 201304, end: 201305

REACTIONS (1)
  - Abnormal dreams [None]
